FAERS Safety Report 4922499-4 (Version None)
Quarter: 2006Q1

REPORT INFORMATION
  Report Type: 
  Country: None (occurrence: None)
  Receive Date: 20060224
  Receipt Date: 20060216
  Transmission Date: 20060701
  Serious: Yes (Death)
  Sender: FDA-Public Use
  Company Number: NSADSS2003009917

PATIENT
  Sex: Female

DRUGS (9)
  1. REMICADE [Suspect]
     Indication: RHEUMATOID ARTHRITIS
     Route: 042
  2. ATENOLOL [Concomitant]
  3. PREMARIN [Concomitant]
  4. COMPAZINE [Concomitant]
  5. DIGOXIN [Concomitant]
  6. CELEBREX [Concomitant]
  7. TEMAZEPAM [Concomitant]
  8. ASPIRIN [Concomitant]
  9. ACTONEL [Concomitant]

REACTIONS (2)
  - COLON CANCER [None]
  - HEPATIC NEOPLASM MALIGNANT [None]
